FAERS Safety Report 8647616 (Version 2)
Quarter: 2014Q1

REPORT INFORMATION
  Report Type: Spontaneous
  Country: US (occurrence: None)
  Receive Date: 20120323
  Receipt Date: 20130305
  Transmission Date: 20141002
  Serious: Yes (Hospitalization, Other)
  Sender: FDA-Public Use
  Company Number: 163-21880-11082807

PATIENT
  Age: 81 Year
  Sex: Female

DRUGS (10)
  1. REVLIMID [Suspect]
     Indication: PLASMA CELL MYELOMA
     Route: 048
     Dates: start: 20080124
  2. ROSUVASTATIN CALCIUM [Concomitant]
  3. TEMAZEPAM [Concomitant]
  4. B-COMPLEX-VITAMIN C-FOLIC ACID (VITAMIN B-COMPLEX WITH VITAMIN C) [Concomitant]
  5. TRAMADOL HYDROCHLORIDE [Concomitant]
  6. NITROGLYCERIN [Concomitant]
  7. LANTHANUM (LANTHANUM CARBONATE) [Concomitant]
  8. ROPINIROLE [Concomitant]
  9. LOPERAMIDE HYDROCHLORIDE [Concomitant]
  10. OXYGEN (OXYGEN) [Concomitant]

REACTIONS (3)
  - Pathological fracture [None]
  - Insomnia [None]
  - Confusional state [None]
